FAERS Safety Report 4632413-7 (Version None)
Quarter: 2005Q2

REPORT INFORMATION
  Report Type: 
  Country: None (occurrence: None)
  Receive Date: 20050411
  Receipt Date: 20050402
  Transmission Date: 20051028
  Serious: Yes (Other)
  Sender: FDA-Public Use
  Company Number: US-JNJFOC-20050401207

PATIENT
  Sex: Male
  Weight: 28.12 kg

DRUGS (5)
  1. TYLENOL (GELTAB) [Suspect]
     Route: 049
  2. TYLENOL (GELTAB) [Suspect]
     Indication: HEADACHE
     Route: 049
  3. NASONEX [Concomitant]
     Dosage: UNKNOWN
  4. ZYRTEC [Concomitant]
  5. FLOVENT [Concomitant]
     Dosage: UNKNOWN

REACTIONS (4)
  - CHEST PAIN [None]
  - HYPERSENSITIVITY [None]
  - VOMITING [None]
  - WEIGHT DECREASED [None]
